FAERS Safety Report 8279362-3 (Version None)
Quarter: 2012Q2

REPORT INFORMATION
  Report Type: 
  Country: None (occurrence: None)
  Receive Date: 20120412
  Receipt Date: 20111122
  Transmission Date: 20120825
  Serious: No
  Sender: FDA-Public Use
  Company Number: US-ASTRAZENECA-2011SE59296

PATIENT
  Age: 85 Year
  Sex: Male
  Weight: 90.7 kg

DRUGS (3)
  1. ASPIRIN [Concomitant]
  2. SINGLAR [Concomitant]
  3. NEXIUM [Suspect]
     Indication: GASTROOESOPHAGEAL REFLUX DISEASE
     Route: 048
     Dates: start: 20060101, end: 20100101

REACTIONS (3)
  - CHOKING [None]
  - DRUG THERAPY CHANGED [None]
  - CHEST PAIN [None]
